FAERS Safety Report 6544014-4 (Version None)
Quarter: 2010Q1

REPORT INFORMATION
  Report Type: 
  Country: None (occurrence: None)
  Receive Date: 20100120
  Receipt Date: 20100113
  Transmission Date: 20100710
  Serious: Yes (Other)
  Sender: FDA-Public Use
  Company Number: US-TYCO HEALTHCARE/MALLINCKRODT-T201000067

PATIENT

DRUGS (1)
  1. SODIUM IODIDE I 123 [Suspect]
     Indication: SCAN THYROID GLAND
     Dosage: UNK, SINGLE
     Dates: start: 20100113, end: 20100113

REACTIONS (2)
  - OROPHARYNGEAL PAIN [None]
  - PHARYNGEAL OEDEMA [None]
